FAERS Safety Report 4860589-5 (Version None)
Quarter: 2005Q4

REPORT INFORMATION
  Report Type: 
  Country: None (occurrence: None)
  Receive Date: 20051219
  Receipt Date: 20051005
  Transmission Date: 20060501
  Serious: Yes (Hospitalization, Disabling)
  Sender: FDA-Public Use
  Company Number: US-MERCK-0510USA05526

PATIENT
  Age: 47 Year
  Sex: Female
  Weight: 114 kg

DRUGS (7)
  1. VIOXX [Suspect]
     Indication: RHEUMATOID ARTHRITIS
     Route: 048
     Dates: start: 20000101, end: 20030101
  2. TYLENOL (CAPLET) [Concomitant]
     Route: 048
  3. METHOTREXATE [Concomitant]
     Route: 048
  4. FOLIC ACID [Concomitant]
     Route: 048
  5. ATENOLOL [Concomitant]
     Route: 048
  6. ASPIRIN [Concomitant]
     Route: 048
  7. HYDRALAZINE [Concomitant]
     Route: 048

REACTIONS (15)
  - ANAEMIA [None]
  - ANXIETY [None]
  - BACK PAIN [None]
  - CHEST PAIN [None]
  - DEPRESSION [None]
  - HYPERTENSION [None]
  - HYPOCALCAEMIA [None]
  - HYPOKINESIA [None]
  - INTESTINAL OBSTRUCTION [None]
  - JAUNDICE [None]
  - MYELITIS TRANSVERSE [None]
  - OBESITY [None]
  - PULMONARY EMBOLISM [None]
  - STAPHYLOCOCCAL SEPSIS [None]
  - VOLVULUS [None]
